FAERS Safety Report 9852862 (Version 3)
Quarter: 2014Q2

REPORT INFORMATION
  Report Type: Spontaneous
  Country: US (occurrence: US)
  Receive Date: 20140129
  Receipt Date: 20140418
  Transmission Date: 20141212
  Serious: Yes (Other)
  Sender: FDA-Public Use
  Company Number: US-PFIZER INC-2014027021

PATIENT
  Sex: Female

DRUGS (2)
  1. EFFEXOR XR [Suspect]
     Dosage: 150 MG, 1X/DAY
  2. ZOLOFT [Suspect]
     Dosage: UNK

REACTIONS (3)
  - Joint dislocation [Unknown]
  - Pain in extremity [Unknown]
  - Malaise [Unknown]
